FAERS Safety Report 7568072-3 (Version None)
Quarter: 2011Q2

REPORT INFORMATION
  Report Type: 
  Country: None (occurrence: None)
  Receive Date: 20110623
  Receipt Date: 20110616
  Transmission Date: 20111010
  Serious: Yes (Other)
  Sender: FDA-Public Use
  Company Number: FR-KINGPHARMUSA00001-K201001543

PATIENT
  Age: 50 Year
  Sex: Female

DRUGS (2)
  1. BUDESONIDE W/FORMOTEROL FUMARATE [Concomitant]
  2. ALTACE [Suspect]
     Dosage: UNK
     Route: 048
     Dates: start: 20100101, end: 20100101

REACTIONS (7)
  - COUGH [None]
  - GENERAL PHYSICAL HEALTH DETERIORATION [None]
  - OROPHARYNGEAL PAIN [None]
  - DYSPNOEA [None]
  - BRONCHOSPASM [None]
  - BRONCHIAL OBSTRUCTION [None]
  - ASTHMA [None]
